FAERS Safety Report 6038149-2 (Version None)
Quarter: 2009Q1

REPORT INFORMATION
  Report Type: 
  Country: None (occurrence: None)
  Receive Date: 20090115
  Receipt Date: 20090109
  Transmission Date: 20090719
  Serious: Yes (Other)
  Sender: FDA-Public Use
  Company Number: US-ASTRAZENECA-2009UW00815

PATIENT
  Age: 48 Year
  Sex: Female

DRUGS (12)
  1. NEXIUM [Suspect]
     Indication: GASTROOESOPHAGEAL REFLUX DISEASE
     Route: 048
  2. FLUOXETINE [Concomitant]
  3. ISOSORBMONO [Concomitant]
  4. NITROGLYCERIN [Concomitant]
  5. MAGNESIUM OVER THE COUNTER [Concomitant]
  6. POTASSIUM CHLORIDE [Concomitant]
  7. LISINOPRIL [Concomitant]
     Route: 048
  8. ASPIRIN [Concomitant]
  9. PLAVIX [Concomitant]
  10. CRESTOR [Concomitant]
     Route: 048
  11. AMLODIPINE [Concomitant]
  12. METOPROLOL TARTRATE [Concomitant]

REACTIONS (4)
  - DECREASED APPETITE [None]
  - DYSPEPSIA [None]
  - MALAISE [None]
  - MYOCARDIAL INFARCTION [None]
